FAERS Safety Report 5369417-5 (Version None)
Quarter: 2007Q2

REPORT INFORMATION
  Report Type: 
  Country: None (occurrence: None)
  Receive Date: 20070625
  Receipt Date: 20070612
  Transmission Date: 20071010
  Serious: Yes (Hospitalization)
  Sender: FDA-Public Use
  Company Number: JP-PURDUE-MAG_2007_0000551

PATIENT
  Age: 79 Year
  Sex: Female

DRUGS (6)
  1. OXYCODONE HCL [Suspect]
     Indication: CANCER PAIN
     Dosage: 10 MG, UNK
     Route: 048
     Dates: start: 20050401, end: 20050422
  2. NOVAMIN [Concomitant]
     Indication: PROPHYLAXIS OF NAUSEA AND VOMITING
     Dosage: 15 MG, DAILY
     Route: 048
     Dates: start: 20050401, end: 20050407
  3. AMOBAN [Concomitant]
     Indication: BREAST CANCER
     Dosage: 7.5 MG, DAILY
     Route: 048
     Dates: start: 20050303, end: 20050422
  4. KELNAC [Concomitant]
     Indication: GASTRITIS PROPHYLAXIS
     Dosage: 240 MG, DAILY
     Route: 048
     Dates: start: 20050303, end: 20050422
  5. AROMASIN [Concomitant]
     Indication: BREAST CANCER
     Dosage: 25 MG, DAILY
     Route: 048
     Dates: start: 20050303, end: 20050422
  6. HYPEN [Concomitant]
     Indication: CANCER PAIN
     Dosage: 600 MG, DAILY
     Route: 048
     Dates: start: 20050303, end: 20050422

REACTIONS (2)
  - FALL [None]
  - FEMUR FRACTURE [None]
